FAERS Safety Report 8076726-8 (Version None)
Quarter: 2012Q1

REPORT INFORMATION
  Report Type: 
  Country: None (occurrence: None)
  Receive Date: 20120127
  Receipt Date: 20120120
  Transmission Date: 20120608
  Serious: Yes (Hospitalization)
  Sender: FDA-Public Use
  Company Number: CHPA2012US001781

PATIENT
  Age: 77 Year
  Sex: Female

DRUGS (4)
  1. NEXIUM [Concomitant]
     Indication: GASTROOESOPHAGEAL REFLUX DISEASE
     Dosage: UNK DF, UNK
  2. DURAHIST [Suspect]
     Indication: NASAL CONGESTION
     Dosage: UNK DF, UNK
     Route: 048
     Dates: start: 20120117, end: 20120119
  3. GAS-X EXTSTR CHEWABLE TABS CHERRY CREME [Suspect]
     Indication: FLATULENCE
     Dosage: 1 DF, 2-4 TIMES PER DAY
     Route: 048
     Dates: end: 20120119
  4. PREMARIN [Concomitant]
     Indication: OESTROGEN REPLACEMENT THERAPY
     Dosage: UNK DF, UNK

REACTIONS (4)
  - CARDIAC MURMUR [None]
  - HALLUCINATION [None]
  - INCORRECT DRUG ADMINISTRATION DURATION [None]
  - CONFUSIONAL STATE [None]
